FAERS Safety Report 16126112 (Version 1)
Quarter: 2019Q1

REPORT INFORMATION
  Report Type: Spontaneous
  Country: US (occurrence: US)
  Receive Date: 20190328
  Receipt Date: 20190328
  Transmission Date: 20190418
  Serious: No
  Sender: FDA-Public Use
  Company Number: US-AMGEN-USASP2019044898

PATIENT
  Sex: Female

DRUGS (4)
  1. PROTONIX [OMEPRAZOLE] [Concomitant]
     Active Substance: OMEPRAZOLE
  2. METOPROLOL ER [Concomitant]
     Active Substance: METOPROLOL SUCCINATE
  3. PROLIA [Suspect]
     Active Substance: DENOSUMAB
     Indication: PRODUCT USED FOR UNKNOWN INDICATION
     Dosage: UNK
     Route: 065
  4. LIPITOR [Concomitant]
     Active Substance: ATORVASTATIN CALCIUM
     Dosage: 10 MILLIGRAM
     Dates: start: 2017

REACTIONS (1)
  - Myalgia [Unknown]
